FAERS Safety Report 5363597-3 (Version None)
Quarter: 2007Q2

REPORT INFORMATION
  Report Type: 
  Country: None (occurrence: None)
  Receive Date: 20070620
  Receipt Date: 20070615
  Transmission Date: 20071010
  Serious: Yes (Death, Life-Threatening, Hospitalization, Other)
  Sender: FDA-Public Use
  Company Number: B0466695A

PATIENT
  Age: 52 Year
  Sex: Male

DRUGS (7)
  1. ZEFIX [Suspect]
     Indication: HEPATIC CIRRHOSIS
     Dosage: 100MG PER DAY
     Route: 048
     Dates: start: 20050425, end: 20061017
  2. ENTECAVIR [Concomitant]
     Indication: HEPATIC CIRRHOSIS
     Dosage: .5MG PER DAY
     Route: 048
     Dates: start: 20061018
  3. TAKEPRON [Concomitant]
     Indication: VARICES OESOPHAGEAL
     Route: 048
  4. FUROSEMIDE [Concomitant]
     Indication: HEPATIC CIRRHOSIS
     Route: 048
  5. AMINOLEBAN EN [Concomitant]
     Indication: HEPATIC CIRRHOSIS
     Route: 048
  6. BIOFERMIN [Concomitant]
     Indication: VARICES OESOPHAGEAL
     Route: 048
  7. LACTULOSE [Concomitant]
     Indication: HEPATIC CIRRHOSIS
     Route: 048

REACTIONS (2)
  - HEPATIC ENCEPHALOPATHY [None]
  - HEPATIC NEOPLASM MALIGNANT [None]
